FAERS Safety Report 10759212 (Version 2)
Quarter: 2015Q2

REPORT INFORMATION
  Report Type: Report from Study
  Country: GB (occurrence: GB)
  Receive Date: 20150203
  Receipt Date: 20150420
  Transmission Date: 20150821
  Serious: Yes (Death)
  Sender: FDA-Public Use
  Company Number: GB-CELGENE-GBR-2015015561

PATIENT
  Age: 78 Year
  Sex: Female
  Weight: 58.6 kg

DRUGS (10)
  1. OMEPRAZOLE. [Concomitant]
     Active Substance: OMEPRAZOLE
     Indication: PROPHYLAXIS
     Dosage: 100 MILLIGRAM
     Route: 048
     Dates: end: 20150128
  2. SINTHROME [Concomitant]
     Active Substance: ACENOCOUMAROL
     Indication: ATRIAL FIBRILLATION
     Dosage: AA PER INR
     Route: 048
     Dates: end: 20150128
  3. QUININE SULPHATE [Concomitant]
     Active Substance: QUININE SULFATE
     Indication: MUSCLE SPASMS
     Route: 048
     Dates: end: 20150128
  4. FUROSEMIDE. [Concomitant]
     Active Substance: FUROSEMIDE
     Indication: FLUID RETENTION
     Dosage: 100 MICROGRAM
     Route: 048
     Dates: end: 20150119
  5. SERTRALINE [Concomitant]
     Active Substance: SERTRALINE HYDROCHLORIDE
     Indication: DEPRESSION
     Dosage: 40 MILLIGRAM
     Route: 048
     Dates: end: 20150128
  6. CC-5013 [Suspect]
     Active Substance: LENALIDOMIDE
     Route: 048
     Dates: start: 20150119, end: 20150128
  7. CO-AMILOFRUSE [Concomitant]
     Active Substance: AMILORIDE\FUROSEMIDE
     Indication: FLUID RETENTION
     Dosage: 5/40
     Route: 048
     Dates: end: 20150128
  8. CC-5013 [Suspect]
     Active Substance: LENALIDOMIDE
     Indication: DIFFUSE LARGE B-CELL LYMPHOMA
     Route: 048
     Dates: start: 20120516
  9. LEVOTHYROXINE [Concomitant]
     Active Substance: LEVOTHYROXINE
     Indication: HYPOTHYROIDISM
     Route: 048
     Dates: end: 20150128
  10. NITROFURANTIN [Concomitant]
     Active Substance: NITROFURANTOIN
     Indication: PROPHYLAXIS URINARY TRACT INFECTION
     Route: 048
     Dates: end: 20150128

REACTIONS (1)
  - Death [Fatal]

NARRATIVE: CASE EVENT DATE: 20150128
